FAERS Safety Report 15765110 (Version 2)
Quarter: 2019Q1

REPORT INFORMATION
  Report Type: Spontaneous
  Country: US (occurrence: US)
  Receive Date: 20181227
  Receipt Date: 20190102
  Transmission Date: 20190417
  Serious: Yes (Life-Threatening, Hospitalization, Other)
  Sender: FDA-Public Use
  Company Number: US-GBPHLPEH-2018-PEL-003507

PATIENT

DRUGS (3)
  1. GABLOFEN [Suspect]
     Active Substance: BACLOFEN
     Indication: MUSCLE SPASTICITY
     Dosage: UNK
     Route: 037
  2. GABLOFEN [Suspect]
     Active Substance: BACLOFEN
     Indication: BRAIN INJURY
     Dosage: BOLUS DOSE
     Route: 037
  3. GABLOFEN [Suspect]
     Active Substance: BACLOFEN
     Indication: HEAD INJURY
     Dosage: UNK
     Route: 037
     Dates: start: 20180529

REACTIONS (5)
  - Seizure [Not Recovered/Not Resolved]
  - Device dislocation [Not Recovered/Not Resolved]
  - Oxygen saturation decreased [Not Recovered/Not Resolved]
  - Hypertonia [Not Recovered/Not Resolved]
  - Apnoea [Not Recovered/Not Resolved]

NARRATIVE: CASE EVENT DATE: 20180501
